FAERS Safety Report 7333267-0 (Version None)
Quarter: 2011Q1

REPORT INFORMATION
  Report Type: 
  Country: None (occurrence: None)
  Receive Date: 20110304
  Receipt Date: 20110221
  Transmission Date: 20110831
  Serious: Yes (Other)
  Sender: FDA-Public Use
  Company Number: GB-ELI_LILLY_AND_COMPANY-GB201102005550

PATIENT
  Age: 64 Year
  Sex: Female

DRUGS (2)
  1. BETA BLOCKING AGENTS [Suspect]
  2. CYMBALTA [Suspect]

REACTIONS (3)
  - ANGINA PECTORIS [None]
  - BLOOD PRESSURE INCREASED [None]
  - MALAISE [None]
